FAERS Safety Report 5600281-2 (Version None)
Quarter: 2008Q1

REPORT INFORMATION
  Report Type: 
  Country: None (occurrence: None)
  Receive Date: 20080123
  Receipt Date: 20080111
  Transmission Date: 20080703
  Serious: Yes (Hospitalization)
  Sender: FDA-Public Use
  Company Number: FR-AVENTIS-200810144FR

PATIENT
  Age: 10 Year
  Sex: Male
  Weight: 18 kg

DRUGS (12)
  1. CORTANCYL [Suspect]
     Route: 048
     Dates: start: 20020301, end: 20030401
  2. SECTRAL [Suspect]
     Route: 048
     Dates: start: 20060701
  3. SECTRAL [Suspect]
     Route: 048
     Dates: start: 20060701
  4. LASILIX                            /00032601/ [Suspect]
     Route: 048
     Dates: start: 20040401
  5. LASILIX                            /00032601/ [Suspect]
     Route: 048
     Dates: start: 20040401
  6. IMUREL                             /00001501/ [Suspect]
     Route: 048
     Dates: start: 20030401
  7. ADALAT [Suspect]
     Route: 048
     Dates: start: 20021001, end: 20071201
  8. ADALAT [Suspect]
     Route: 048
     Dates: start: 20021001, end: 20071201
  9. LOPRIL                             /00498401/ [Suspect]
     Route: 048
     Dates: start: 20030401, end: 20070601
  10. LOPRIL                             /00498401/ [Suspect]
     Route: 048
     Dates: start: 20030401, end: 20070601
  11. CARVEDILOL [Suspect]
     Route: 048
     Dates: start: 20041001, end: 20060701
  12. CARVEDILOL [Suspect]
     Route: 048
     Dates: start: 20041001, end: 20060701

REACTIONS (2)
  - ARTHRITIS [None]
  - OSTEONECROSIS [None]
